FAERS Safety Report 15460856 (Version 16)
Quarter: 2020Q2

REPORT INFORMATION
  Report Type: Report from Study
  Country: US (occurrence: US)
  Receive Date: 20181003
  Receipt Date: 20200423
  Transmission Date: 20200713
  Serious: Yes (Death, Hospitalization, Disabling)
  Sender: FDA-Public Use
  Company Number: US-ACTELION-A-NJ2018-179526

PATIENT
  Age: 75 Year
  Sex: Female
  Weight: 58.5 kg

DRUGS (8)
  1. UPTRAVI [Suspect]
     Active Substance: SELEXIPAG
     Indication: PULMONARY ARTERIAL HYPERTENSION
     Dosage: 1200 MCG, BID
     Route: 048
     Dates: start: 20180713
  2. ADEMPAS [Concomitant]
     Active Substance: RIOCIGUAT
     Dosage: UNK
     Dates: start: 20150924
  3. MYCOPHENOLATE [Concomitant]
     Active Substance: MYCOPHENOLIC ACID
     Indication: SCLERODERMA
  4. METHOTREXATE. [Concomitant]
     Active Substance: METHOTREXATE
  5. PANTOPRAZOLE [Concomitant]
     Active Substance: PANTOPRAZOLE
     Dosage: UNK
     Dates: start: 20190430
  6. UPTRAVI [Suspect]
     Active Substance: SELEXIPAG
     Dosage: UNK
     Route: 048
     Dates: start: 20171018
  7. OPSUMIT [Suspect]
     Active Substance: MACITENTAN
     Indication: PULMONARY ARTERIAL HYPERTENSION
     Dosage: 10 MG, QD
     Route: 048
     Dates: start: 20151019
  8. CELLCEPT [Concomitant]
     Active Substance: MYCOPHENOLATE MOFETIL\MYCOPHENOLATE MOFETIL HYDROCHLORIDE
     Dosage: UNK

REACTIONS (16)
  - Anxiety [Unknown]
  - Hepatic cyst [Unknown]
  - Surgery [Unknown]
  - Fatigue [Unknown]
  - Disease complication [Fatal]
  - Scleroderma [Unknown]
  - Pyrexia [Fatal]
  - Pulmonary arterial hypertension [Fatal]
  - Malaise [Unknown]
  - Abdominal pain [Unknown]
  - T-cell type acute leukaemia [Fatal]
  - Gastrointestinal disorder [Unknown]
  - Dyspnoea [Fatal]
  - Dehydration [Unknown]
  - Vomiting [Unknown]
  - Pain [Unknown]

NARRATIVE: CASE EVENT DATE: 20190618
